FAERS Safety Report 17597695 (Version 2)
Quarter: 2020Q2

REPORT INFORMATION
  Report Type: Spontaneous
  Country: GB (occurrence: GB)
  Receive Date: 20200330
  Receipt Date: 20200421
  Transmission Date: 20200713
  Serious: Yes (Disabling, Other)
  Sender: FDA-Public Use
  Company Number: GB-BRISTOL-MYERS SQUIBB COMPANY-BMS-2020-023769

PATIENT
  Sex: Male

DRUGS (3)
  1. OZURDEX [Suspect]
     Active Substance: DEXAMETHASONE
     Indication: STEROID THERAPY
     Dosage: UNK
     Route: 065
  2. KENALOG [Suspect]
     Active Substance: TRIAMCINOLONE ACETONIDE
     Indication: STEROID THERAPY
     Dosage: SINGLE ADMINISTRATION
     Route: 065
     Dates: start: 201705
  3. DEXAMETHASONE. [Suspect]
     Active Substance: DEXAMETHASONE
     Indication: STEROID THERAPY
     Dosage: 1 ML AMPOULE (SINGLE ADMINISTRATION) 3.3 MG/ML SOLUTION FOR INJECTION
     Route: 065
     Dates: start: 201611

REACTIONS (21)
  - Glaucoma [Unknown]
  - Muscular weakness [Unknown]
  - Immunosuppression [Unknown]
  - Hypertension [Unknown]
  - Mobility decreased [Unknown]
  - Lung disorder [Unknown]
  - Hypersensitivity [Unknown]
  - Uveitis-glaucoma-hyphaema syndrome [Unknown]
  - Cardiac disorder [Unknown]
  - Off label use [Unknown]
  - Cellulitis orbital [Unknown]
  - Impaired quality of life [Unknown]
  - Headache [Unknown]
  - Impaired work ability [Unknown]
  - Infection susceptibility increased [Unknown]
  - Cystoid macular oedema [Unknown]
  - Psychiatric symptom [Unknown]
  - Blindness [Unknown]
  - Photophobia [Unknown]
  - Suicidal ideation [Unknown]
  - Anxiety [Unknown]

NARRATIVE: CASE EVENT DATE: 201612
